FAERS Safety Report 20491240 (Version 1)
Quarter: 2022Q1

REPORT INFORMATION
  Report Type: Report from Study
  Country: US (occurrence: US)
  Receive Date: 20220218
  Receipt Date: 20220218
  Transmission Date: 20220424
  Serious: No
  Sender: FDA-Public Use
  Company Number: US-MIRM-000244

PATIENT
  Age: 1 Year
  Sex: Male
  Weight: 9.979 kg

DRUGS (8)
  1. LIVMARLI [Suspect]
     Active Substance: MARALIXIBAT CHLORIDE
     Indication: Pruritus
     Route: 048
     Dates: start: 20211203
  2. LIVMARLI [Suspect]
     Active Substance: MARALIXIBAT CHLORIDE
     Indication: Pruritus
     Route: 048
     Dates: start: 20211216
  3. 2382297 (GLOBALC3Sep19): Vitamin ADEK [Concomitant]
     Indication: Product used for unknown indication
     Route: 048
  4. 2930039 (GLOBALC3Sep19): Hydroxyzine [Concomitant]
     Indication: Product used for unknown indication
     Dosage: TIME INTERVAL: AS NECESSARY; TAKEN AS DIRECTED?10 MG/5 ML UP TO 4XD
     Route: 048
  5. 1328777 (GLOBALC3Sep19): Ursodial 60mg/mL [Concomitant]
     Indication: Product used for unknown indication
     Dosage: 60 MG/ML
     Route: 048
  6. 2380904 (GLOBALC3Sep19): Vitamin D 45000 units (100mcg) [Concomitant]
     Indication: Product used for unknown indication
     Dosage: 45000 UNITS (100 MCG)
     Route: 048
  7. 1328916 (GLOBALC3Sep19): Vitamin K 1mg/5mL [Concomitant]
     Indication: Product used for unknown indication
     Dosage: 1 MG/5 ML
     Route: 048
  8. 1328139 (GLOBALC3Sep19): rifampin [Concomitant]
     Indication: Product used for unknown indication
     Route: 048

REACTIONS (3)
  - Abnormal faeces [Unknown]
  - Abnormal faeces [Unknown]
  - Faeces hard [Unknown]

NARRATIVE: CASE EVENT DATE: 20211201
